FAERS Safety Report 23824341 (Version 2)
Quarter: 2024Q3

REPORT INFORMATION
  Report Type: Spontaneous
  Country: JP (occurrence: JP)
  Receive Date: 20240507
  Receipt Date: 20240909
  Transmission Date: 20241017
  Serious: Yes (Other)
  Sender: GILEAD
  Company Number: JP-GILEAD-2024-0670541

PATIENT
  Age: 80 Year
  Sex: Female
  Weight: 44 kg

DRUGS (9)
  1. EPCLUSA [Suspect]
     Active Substance: SOFOSBUVIR\VELPATASVIR
     Indication: Chronic hepatitis C
     Dosage: 1 DOSAGE FORM, QD
     Route: 048
     Dates: start: 20240405, end: 20240628
  2. AMLODIPINE BESYLATE [Concomitant]
     Active Substance: AMLODIPINE BESYLATE
     Dosage: 1 DOSAGE FORM, QD
     Route: 048
  3. VONOPRAZAN FUMARATE [Concomitant]
     Active Substance: VONOPRAZAN FUMARATE
     Dosage: 1 DOSAGE FORM, QD
     Route: 048
  4. SAFINAMIDE MESYLATE [Concomitant]
     Active Substance: SAFINAMIDE MESYLATE
     Dosage: 1 DOSAGE FORM, QD
     Route: 048
  5. PRAMIPEXOLE DIHYDROCHLORIDE [Concomitant]
     Active Substance: PRAMIPEXOLE DIHYDROCHLORIDE
     Dosage: 1 DOSAGE FORM, QD
     Route: 048
  6. NEUPRO [Concomitant]
     Active Substance: ROTIGOTINE
     Dosage: UNK, QD
  7. MAGNESIUM OXIDE [Concomitant]
     Active Substance: MAGNESIUM OXIDE
     Dosage: UNK, TID
  8. CARBIDOPA\LEVODOPA [Concomitant]
     Active Substance: CARBIDOPA\LEVODOPA
     Dosage: UNK, QID
  9. ENTACAPONE [Concomitant]
     Active Substance: ENTACAPONE
     Dosage: UNK, QID

REACTIONS (1)
  - Renal impairment [Unknown]

NARRATIVE: CASE EVENT DATE: 20240419
